FAERS Safety Report 9469474 (Version 1)
Quarter: 2013Q3

REPORT INFORMATION
  Report Type: Spontaneous
  Country: BE (occurrence: BE)
  Receive Date: 20130822
  Receipt Date: 20130822
  Transmission Date: 20140515
  Serious: Yes (Other)
  Sender: FDA-Public Use
  Company Number: BE-ROCHE-1262799

PATIENT
  Age: 70 Year
  Sex: Male

DRUGS (5)
  1. LUCENTIS [Suspect]
     Indication: AGE-RELATED MACULAR DEGENERATION
     Route: 050
     Dates: start: 201201, end: 201305
  2. TAMSULOSINE [Concomitant]
  3. CRESTOR [Concomitant]
  4. VITAMIN D2 [Concomitant]
  5. CARDIOASPIRINE [Concomitant]

REACTIONS (8)
  - Chronic obstructive pulmonary disease [Unknown]
  - Emphysema [Not Recovered/Not Resolved]
  - Dyspnoea [Unknown]
  - Forced expiratory volume abnormal [Unknown]
  - Functional residual capacity increased [Unknown]
  - Pulmonary function test abnormal [Unknown]
  - Carbon monoxide diffusing capacity decreased [Unknown]
  - Dyspnoea exertional [Unknown]
